FAERS Safety Report 5682889-1 (Version None)
Quarter: 2008Q1

REPORT INFORMATION
  Report Type: 
  Country: None (occurrence: None)
  Receive Date: 20080325
  Receipt Date: 20080312
  Transmission Date: 20080703
  Serious: Yes (Other)
  Sender: FDA-Public Use
  Company Number: 2008006486

PATIENT
  Sex: Male

DRUGS (1)
  1. ROGAINE [Suspect]
     Dosage: 1 ML ,ONCE (1 ML,1 IN 1 D), TOPICAL
     Route: 061
     Dates: start: 20060718, end: 20060718

REACTIONS (5)
  - ALOPECIA [None]
  - HAIR GROWTH ABNORMAL [None]
  - MADAROSIS [None]
  - PRURITUS [None]
  - WEIGHT DECREASED [None]
